FAERS Safety Report 25008873 (Version 1)
Quarter: 2025Q1

REPORT INFORMATION
  Report Type: Spontaneous
  Country: US (occurrence: US)
  Receive Date: 20250225
  Receipt Date: 20250225
  Transmission Date: 20250409
  Serious: Yes (Hospitalization, Other)
  Sender: AUROBINDO
  Company Number: US-MLMSERVICE-20250204-PI390062-00270-1

PATIENT
  Age: 60 Year
  Sex: Female

DRUGS (5)
  1. PREDNISOLONE [Suspect]
     Active Substance: PREDNISOLONE
     Indication: Crohn^s disease
     Route: 065
     Dates: start: 202307, end: 202403
  2. UPADACITINIB [Suspect]
     Active Substance: UPADACITINIB
     Indication: Crohn^s disease
     Dosage: 45 MILLIGRAM, ONCE A DAY
     Route: 065
     Dates: start: 202309, end: 2023
  3. UPADACITINIB [Suspect]
     Active Substance: UPADACITINIB
     Dosage: 30 MILLIGRAM, ONCE A DAY, TAPERED TO 30 MG/D
     Route: 065
     Dates: start: 2023
  4. UPADACITINIB [Suspect]
     Active Substance: UPADACITINIB
     Dosage: 45 MILLIGRAM, ONCE A DAY, INCREASED BACK TO 45 MG/D
     Route: 065
     Dates: end: 2024
  5. VEDOLIZUMAB [Suspect]
     Active Substance: VEDOLIZUMAB
     Indication: Crohn^s disease
     Route: 065
     Dates: end: 202309

REACTIONS (2)
  - Herpes zoster disseminated [Recovering/Resolving]
  - Rebound effect [Unknown]

NARRATIVE: CASE EVENT DATE: 20240101
